FAERS Safety Report 7909125-7 (Version None)
Quarter: 2011Q4

REPORT INFORMATION
  Report Type: 
  Country: None (occurrence: None)
  Receive Date: 20111111
  Receipt Date: 20100930
  Transmission Date: 20120403
  Serious: No
  Sender: FDA-Public Use
  Company Number: US-GLAXOSMITHKLINE-A0885509A

PATIENT
  Age: 61 Year
  Sex: Female

DRUGS (1)
  1. COREG [Suspect]
     Indication: PRODUCT USED FOR UNKNOWN INDICATION
     Dosage: 4TAB PER DAY
     Route: 065
     Dates: start: 20030901, end: 20100902

REACTIONS (2)
  - FEELING ABNORMAL [None]
  - ANXIETY [None]
